FAERS Safety Report 10079472 (Version 2)
Quarter: 2014Q2

REPORT INFORMATION
  Report Type: Spontaneous
  Country: US (occurrence: US)
  Receive Date: 20140415
  Receipt Date: 20140417
  Transmission Date: 20141212
  Serious: Yes (Death)
  Sender: FDA-Public Use
  Company Number: US-ACTELION-A-US2014-97156

PATIENT
  Age: 69 Year
  Sex: Female

DRUGS (4)
  1. VELETRI [Suspect]
     Indication: CONNECTIVE TISSUE DISORDER
     Dosage: 8 NG/KG, PER MIN
     Route: 042
  2. OPSUMIT [Suspect]
     Indication: CONNECTIVE TISSUE DISORDER
     Dosage: 10 MG, QD
     Route: 048
  3. REVATIO [Concomitant]
  4. LETAIRIS [Concomitant]

REACTIONS (2)
  - Connective tissue disorder [Fatal]
  - Disease progression [Fatal]
